FAERS Safety Report 7966650-0 (Version None)
Quarter: 2011Q4

REPORT INFORMATION
  Report Type: 
  Country: None (occurrence: None)
  Receive Date: 20111209
  Receipt Date: 20111205
  Transmission Date: 20120403
  Serious: No
  Sender: FDA-Public Use
  Company Number: US-BIOGENIDEC-2011BI038557

PATIENT
  Age: 51 Year
  Sex: Female

DRUGS (3)
  1. AVONEX [Concomitant]
     Indication: MULTIPLE SCLEROSIS
     Route: 030
  2. TYSABRI [Suspect]
     Indication: MULTIPLE SCLEROSIS
     Route: 042
     Dates: start: 20110127, end: 20111001
  3. TYSABRI [Suspect]
     Route: 042
     Dates: start: 20070112, end: 20090908

REACTIONS (5)
  - NAUSEA [None]
  - FORMICATION [None]
  - ARTHRALGIA [None]
  - RETCHING [None]
  - SWEAT GLAND DISORDER [None]
